FAERS Safety Report 20023332 (Version 4)
Quarter: 2022Q1

REPORT INFORMATION
  Report Type: Report from Study
  Country: CA (occurrence: CA)
  Receive Date: 20211102
  Receipt Date: 20220317
  Transmission Date: 20220424
  Serious: Yes (Other)
  Sender: FDA-Public Use
  Company Number: CA-JNJFOC-20211059909

PATIENT
  Age: 63 Year
  Sex: Female

DRUGS (1)
  1. REMICADE [Suspect]
     Active Substance: INFLIXIMAB
     Indication: Crohn^s disease
     Dosage: ON 17-NOV-2021, THE PATIENT RECEIVED 23RD 400 MG INFLIXIMAB, INFUSION AND PARTIAL HARVEY-BRADSHAW CO
     Route: 042
     Dates: start: 20181024

REACTIONS (4)
  - Clostridium difficile infection [Recovering/Resolving]
  - Dermal cyst [Recovered/Resolved]
  - Abdominal pain [Recovered/Resolved]
  - Flatulence [Unknown]

NARRATIVE: CASE EVENT DATE: 20211101
